FAERS Safety Report 23082496 (Version 2)
Quarter: 2023Q4

REPORT INFORMATION
  Report Type: Report from Study
  Country: US (occurrence: US)
  Receive Date: 20231019
  Receipt Date: 20231026
  Transmission Date: 20240110
  Serious: Yes (Other)
  Sender: FDA-Public Use
  Company Number: US-UCBSA-2023049605

PATIENT
  Age: 34 Year
  Sex: Female
  Weight: 56.7 kg

DRUGS (6)
  1. CERTOLIZUMAB PEGOL [Suspect]
     Active Substance: CERTOLIZUMAB PEGOL
     Indication: Rheumatoid arthritis
     Dosage: 200 MILLIGRAM, EV 2 MONTHS
     Route: 058
     Dates: start: 20211212, end: 20230808
  2. AZELASTINE [Concomitant]
     Active Substance: AZELASTINE
     Indication: Hypersensitivity
     Dosage: 2 PUFF (1 DAY)
     Route: 045
     Dates: start: 20230521, end: 20230712
  3. CETIRIZINE HCL [Concomitant]
     Active Substance: CETIRIZINE HYDROCHLORIDE
     Indication: Hypersensitivity
     Dosage: 1 PILL (1 DAY)
     Route: 048
     Dates: start: 20230521, end: 20230808
  4. MODERNA COVID-19 VACCINE [Concomitant]
     Active Substance: ELASOMERAN
     Indication: Product used for unknown indication
     Dosage: 1 SHOT 1 DAY
     Route: 030
     Dates: start: 20210306, end: 20210306
  5. MODERNA COVID-19 VACCINE [Concomitant]
     Active Substance: ELASOMERAN
     Dosage: 1 SHOT 1 DAY
     Route: 030
     Dates: start: 20210403, end: 20210403
  6. MINERALS\VITAMINS [Concomitant]
     Active Substance: MINERALS\VITAMINS
     Indication: Product used for unknown indication
     Dosage: 1 PILL 1 DAY
     Route: 048
     Dates: start: 20220701, end: 20230731

REACTIONS (5)
  - Abortion spontaneous [Unknown]
  - Uterine dilation and curettage [Unknown]
  - Maternal exposure during pregnancy [Unknown]
  - Maternal exposure before pregnancy [Unknown]
  - Off label use [Unknown]

NARRATIVE: CASE EVENT DATE: 20211212
